FAERS Safety Report 17729835 (Version 1)
Quarter: 2020Q2

REPORT INFORMATION
  Report Type: Spontaneous
  Country: US (occurrence: US)
  Receive Date: 20200430
  Receipt Date: 20200430
  Transmission Date: 20200714
  Serious: No
  Sender: FDA-Public Use
  Company Number: US-GLAXOSMITHKLINE-US2020070792

PATIENT
  Age: 31 Year
  Sex: Female

DRUGS (1)
  1. BENLYSTA [Suspect]
     Active Substance: BELIMUMAB
     Indication: PRODUCT USED FOR UNKNOWN INDICATION
     Dosage: 200 MG/ML, WE
     Route: 042
     Dates: start: 20190424, end: 20191024

REACTIONS (6)
  - Infection [Recovered/Resolved]
  - Malaise [Unknown]
  - Tooth abscess [Unknown]
  - Drug ineffective [Unknown]
  - Pyrexia [Recovered/Resolved]
  - Acne cystic [Recovered/Resolved]

NARRATIVE: CASE EVENT DATE: 20190424
